FAERS Safety Report 4370734-6 (Version None)
Quarter: 2004Q2

REPORT INFORMATION
  Report Type: 
  Country: None (occurrence: None)
  Receive Date: 20040601
  Receipt Date: 20040512
  Transmission Date: 20050107
  Serious: Yes (Other)
  Sender: FDA-Public Use
  Company Number: 000#1#2004-00242

PATIENT
  Age: 62 Year
  Sex: Male

DRUGS (1)
  1. ALPROSTADIL [Suspect]
     Indication: INFLAMMATION LOCALISED
     Dosage: 3 DF INTRAVENOUS DRIP
     Route: 041

REACTIONS (4)
  - DUODENAL ULCER HAEMORRHAGE [None]
  - HAEMATOCRIT DECREASED [None]
  - HAEMOLYSIS [None]
  - TOE AMPUTATION [None]
